FAERS Safety Report 20180949 (Version 3)
Quarter: 2022Q1

REPORT INFORMATION
  Report Type: Report from Study
  Country: US (occurrence: US)
  Receive Date: 20211214
  Receipt Date: 20220330
  Transmission Date: 20220423
  Serious: Yes (Other)
  Sender: FDA-Public Use
  Company Number: US-NOVARTISTESTPH-NVSC2021US284834

PATIENT
  Sex: Male

DRUGS (1)
  1. ENTRESTO [Suspect]
     Active Substance: SACUBITRIL\VALSARTAN
     Indication: Product used for unknown indication
     Dosage: 200 MG
     Route: 065

REACTIONS (5)
  - Ejection fraction decreased [Recovering/Resolving]
  - Weight decreased [Unknown]
  - Brain natriuretic peptide abnormal [Unknown]
  - Dizziness [Unknown]
  - Hypotension [Unknown]
